FAERS Safety Report 8256840-4 (Version None)
Quarter: 2012Q1

REPORT INFORMATION
  Report Type: 
  Country: None (occurrence: None)
  Receive Date: 20120322
  Receipt Date: 20120214
  Transmission Date: 20120608
  Serious: Yes (Hospitalization)
  Sender: FDA-Public Use
  Company Number: UTC-015615

PATIENT
  Age: 56 Year
  Sex: Male
  Weight: 70.45 kg

DRUGS (3)
  1. TYVASO [Suspect]
     Indication: PULMONARY HYPERTENSION
     Dosage: 18-54 MICROGRAMS (4 IN 1 D), INHALATION
     Route: 055
     Dates: start: 20110729
  2. 2) DIURETICS (DIURETICS) [Concomitant]
  3. 1) ADCIRCA (TADALAFIL) [Concomitant]

REACTIONS (1)
  - OXYGEN SATURATION DECREASED [None]
